FAERS Safety Report 6413861 (Version 6)
Quarter: 2020Q4

REPORT INFORMATION
  Report Type: Spontaneous
  Country: US (occurrence: US)
  Receive Date: 20070914
  Receipt Date: 20201031
  Transmission Date: 20210114
  Serious: Yes (Death, Other)
  Sender: FDA-Public Use
  Company Number: US-PURDUE-USA_2007_0028110

PATIENT
  Age: 18 Year
  Sex: Female

DRUGS (2)
  1. OXYCONTIN [Suspect]
     Active Substance: OXYCODONE HYDROCHLORIDE
     Indication: DRUG ABUSE
     Dosage: UNK
     Route: 048
     Dates: start: 20060818
  2. ALCOHOL. [Suspect]
     Active Substance: ALCOHOL
     Indication: ALCOHOL USE
     Route: 048

REACTIONS (4)
  - Respiratory depression [Fatal]
  - Accidental overdose [Fatal]
  - Respiratory arrest [Fatal]
  - Substance abuse [Unknown]

NARRATIVE: CASE EVENT DATE: 2006
